FAERS Safety Report 20094843 (Version 1)
Quarter: 2021Q4

REPORT INFORMATION
  Report Type: Spontaneous
  Country: CN (occurrence: None)
  Receive Date: 20211122
  Receipt Date: 20211122
  Transmission Date: 20220303
  Serious: Yes (Other)
  Sender: FDA-Public Use
  Company Number: CN-ROCHE-2955758

PATIENT
  Age: 54 Year
  Sex: Female
  Weight: 61 kg

DRUGS (3)
  1. HERCEPTIN [Suspect]
     Active Substance: TRASTUZUMAB
     Indication: Tumour excision
     Route: 041
     Dates: start: 20211001, end: 20211001
  2. PACLITAXEL [Suspect]
     Active Substance: PACLITAXEL
     Indication: Tumour excision
     Route: 041
     Dates: start: 20211001, end: 20211001
  3. CARBOPLATIN [Suspect]
     Active Substance: CARBOPLATIN
     Indication: Tumour excision
     Route: 041
     Dates: start: 20211001, end: 20211001

REACTIONS (1)
  - Liver injury [Recovering/Resolving]

NARRATIVE: CASE EVENT DATE: 20211008
